FAERS Safety Report 12210691 (Version 1)
Quarter: 2016Q1

REPORT INFORMATION
  Report Type: Spontaneous
  Country: US (occurrence: None)
  Receive Date: 20160324
  Receipt Date: 20160324
  Transmission Date: 20160526
  Serious: No
  Sender: FDA-Public Use
  Company Number: None

PATIENT
  Age: 61 Year
  Sex: Female
  Weight: 52.16 kg

DRUGS (5)
  1. ZITHROMAX [Suspect]
     Active Substance: AZITHROMYCIN DIHYDRATE
     Indication: RESPIRATORY TRACT CONGESTION
     Dosage: 7 2 FIRST DAY ONE TILL GONE MOUTH
     Route: 048
     Dates: start: 20160201, end: 20160203
  2. VITAMINE C [Concomitant]
     Active Substance: ASCORBIC ACID
  3. CALCIUM VITAMINE D3 [Concomitant]
     Active Substance: CALCIUM\CHOLECALCIFEROL
  4. MULTIPLE VITAMINE [Concomitant]
  5. METAMUSAL [Concomitant]

REACTIONS (3)
  - Dizziness [None]
  - Vertigo [None]
  - Product quality issue [None]

NARRATIVE: CASE EVENT DATE: 20160202
